FAERS Safety Report 8799393 (Version 1)
Quarter: 2012Q4

REPORT INFORMATION
  Report Type: Spontaneous
  Country: DK (occurrence: None)
  Receive Date: 20120914
  Receipt Date: 20120914
  Transmission Date: 20130627
  Serious: Yes (Other)
  Sender: FDA-Public Use
  Company Number: 2012MA010849

PATIENT
  Age: 75 Year
  Sex: Male

DRUGS (1)
  1. ACETAMINOPHEN + CODEINE PHOSPHATE [Suspect]
     Dosage: 3 DF; QD
     Route: 048

REACTIONS (6)
  - Insomnia [None]
  - Hypophagia [None]
  - Urinary retention [None]
  - Pain [None]
  - Constipation [None]
  - Suicidal ideation [None]
